FAERS Safety Report 24015731 (Version 1)
Quarter: 2024Q2

REPORT INFORMATION
  Report Type: Spontaneous
  Country: ES (occurrence: ES)
  Receive Date: 20240626
  Receipt Date: 20240626
  Transmission Date: 20240715
  Serious: Yes (Other)
  Sender: FDA-Public Use
  Company Number: ES-PETH-2024061915508

PATIENT
  Age: 72 Year
  Sex: Female
  Weight: 157 kg

DRUGS (3)
  1. DARZALEX [Suspect]
     Active Substance: DARATUMUMAB
     Indication: Product used for unknown indication
     Route: 058
     Dates: start: 20240109, end: 20240507
  2. DEXAMETHASONE SODIUM PHOSPHATE [Suspect]
     Active Substance: DEXAMETHASONE PHOSPHATE\DEXAMETHASONE SODIUM PHOSPHATE
     Indication: Product used for unknown indication
     Dosage: NO BATCH NUMBER IS AVAILABLE, BECAUSE THE MEDICINAL PRODUCT IS NOT PROVIDED BY THE SPONSOR.
     Route: 048
     Dates: start: 20240109, end: 20240514
  3. IBERDOMIDE [Suspect]
     Active Substance: IBERDOMIDE
     Indication: Product used for unknown indication
     Route: 048
     Dates: start: 20240109, end: 20240515

REACTIONS (1)
  - Memory impairment [Not Recovered/Not Resolved]

NARRATIVE: CASE EVENT DATE: 20240516
